FAERS Safety Report 18700297 (Version 3)
Quarter: 2021Q1

REPORT INFORMATION
  Report Type: Report from Study
  Country: None (occurrence: US)
  Receive Date: 20210105
  Receipt Date: 20210214
  Transmission Date: 20210419
  Serious: Yes (Hospitalization)
  Sender: FDA-Public Use
  Company Number: US-ABBVIE-20K-163-3702079-00

PATIENT
  Sex: Female
  Weight: 143.01 kg

DRUGS (2)
  1. SKYRIZI [Suspect]
     Active Substance: RISANKIZUMAB-RZAA
     Indication: PSORIASIS
     Dosage: WEEK 0,4 AND EVERY 12 WEEKS THEREAFTER
     Route: 058
     Dates: start: 2020, end: 2020
  2. SKYRIZI [Suspect]
     Active Substance: RISANKIZUMAB-RZAA
     Indication: PSORIASIS

REACTIONS (5)
  - Tinea infection [Unknown]
  - Blister rupture [Unknown]
  - Bacterial infection [Recovering/Resolving]
  - Hidradenitis [Not Recovered/Not Resolved]
  - Psoriasis [Unknown]

NARRATIVE: CASE EVENT DATE: 2020
